FAERS Safety Report 13075666 (Version 2)
Quarter: 2017Q1

REPORT INFORMATION
  Report Type: Spontaneous
  Country: US (occurrence: US)
  Receive Date: 20161230
  Receipt Date: 20170306
  Transmission Date: 20170428
  Serious: Yes (Other)
  Sender: FDA-Public Use
  Company Number: US-009507513-1612USA013940

PATIENT
  Age: 70 Year
  Sex: Female

DRUGS (1)
  1. HEXADROL [Suspect]
     Active Substance: DEXAMETHASONE
     Dosage: 0.3 TO 0.5 ML OF 10MG/ML, NUMBER OF INJECTIONS 2
     Route: 050

REACTIONS (1)
  - Tympanic membrane perforation [Recovered/Resolved]
